FAERS Safety Report 7035636-5 (Version None)
Quarter: 2010Q4

REPORT INFORMATION
  Report Type: 
  Country: None (occurrence: None)
  Receive Date: 20101007
  Receipt Date: 20101007
  Transmission Date: 20110411
  Serious: No
  Sender: FDA-Public Use
  Company Number: None

PATIENT
  Sex: Male

DRUGS (1)
  1. MALARONE [Suspect]
     Indication: MALARIA PROPHYLAXIS
     Dosage: 250/100 MG DAILY PO
     Route: 048
     Dates: start: 20100907, end: 20100929

REACTIONS (1)
  - BLOOD GLUCOSE INCREASED [None]
